FAERS Safety Report 8840943 (Version 1)
Quarter: 2012Q4

REPORT INFORMATION
  Report Type: 
  Country: FR (occurrence: FR)
  Receive Date: 20121015
  Receipt Date: 20121015
  Transmission Date: 20130627
  Serious: Yes (Hospitalization)
  Sender: FDA-Public Use
  Company Number: FR-ELI_LILLY_AND_COMPANY-FR201210002634

PATIENT
  Age: 53 Year
  Sex: Male

DRUGS (3)
  1. ALIMTA [Suspect]
     Indication: LUNG ADENOCARCINOMA METASTATIC
     Dosage: 860 mg, unknown
     Route: 042
     Dates: start: 20120717
  2. CISPLATIN [Concomitant]
     Indication: LUNG ADENOCARCINOMA METASTATIC
     Dosage: 129 mg, unknown
     Dates: start: 20120717, end: 20120807
  3. AVASTIN [Concomitant]
     Indication: LUNG ADENOCARCINOMA METASTATIC
     Dosage: 900 mg, unknown
     Route: 065
     Dates: start: 20120717, end: 20120807

REACTIONS (1)
  - Thrombophlebitis superficial [Recovered/Resolved]
